FAERS Safety Report 9891213 (Version 2)
Quarter: 2014Q1

REPORT INFORMATION
  Report Type: Spontaneous
  Country: MX (occurrence: None)
  Receive Date: 20140210
  Receipt Date: 20140218
  Transmission Date: 20141002
  Serious: Yes (Death)
  Sender: FDA-Public Use
  Company Number: 2014AP001033

PATIENT
  Age: 49 Year
  Sex: Male

DRUGS (5)
  1. ALLOPURINOL [Suspect]
     Indication: RENAL FAILURE CHRONIC
  2. FUROSEMIDE (FUROSEMIDE) [Concomitant]
  3. CALCITRIOL (CALCITRIOL) [Concomitant]
  4. ENALAPRIL (ENALAPRIL) [Concomitant]
  5. FERROUS FUMARATE (FERROUS FUMARATE) [Concomitant]

REACTIONS (2)
  - Drug reaction with eosinophilia and systemic symptoms [None]
  - Acute hepatic failure [None]
